FAERS Safety Report 5705049-4 (Version None)
Quarter: 2008Q2

REPORT INFORMATION
  Report Type: 
  Country: None (occurrence: None)
  Receive Date: 20080410
  Receipt Date: 20080327
  Transmission Date: 20081010
  Serious: Yes (Hospitalization)
  Sender: FDA-Public Use
  Company Number: 231164J08USA

PATIENT
  Age: 34 Year
  Sex: Female
  Weight: 57.6068 kg

DRUGS (1)
  1. REBIF [Suspect]
     Indication: MULTIPLE SCLEROSIS
     Dosage: 44 MCG, 3 IN 1WEEKS, SUBCUTANEOUS
     Route: 058
     Dates: start: 20071126

REACTIONS (3)
  - INCISION SITE PAIN [None]
  - INJECTION SITE REACTION [None]
  - OVARIAN CYST [None]
